FAERS Safety Report 9256911 (Version 2)
Quarter: 2013Q2

REPORT INFORMATION
  Report Type: Spontaneous
  Country: DE (occurrence: DE)
  Receive Date: 20130426
  Receipt Date: 20130606
  Transmission Date: 20140414
  Serious: Yes (Hospitalization, Other)
  Sender: FDA-Public Use
  Company Number: DE-ROCHE-1218787

PATIENT
  Age: 55 Year
  Sex: Female
  Weight: 58 kg

DRUGS (10)
  1. ROACTEMRA [Suspect]
     Indication: RHEUMATOID ARTHRITIS
     Route: 042
     Dates: start: 2009
  2. METHOTREXATE [Suspect]
     Indication: RHEUMATOID ARTHRITIS
     Route: 048
     Dates: start: 1995
  3. PREDNISOLONE [Suspect]
     Indication: RHEUMATOID ARTHRITIS
     Route: 048
  4. INSUMAN RAPID [Concomitant]
     Indication: DIABETES MELLITUS
     Route: 058
  5. SIMVASTATIN [Concomitant]
     Indication: HYPERCHOLESTEROLAEMIA
     Route: 048
  6. ARCOXIA [Concomitant]
     Indication: PAIN
     Route: 048
  7. LAFAMME (GERMANY) [Concomitant]
     Indication: MENOPAUSE
     Route: 048
  8. INSULIN [Concomitant]
  9. ETORICOXIB [Concomitant]
     Route: 048
  10. ETORICOXIB [Concomitant]
     Route: 048

REACTIONS (4)
  - Arthritis bacterial [Recovered/Resolved]
  - Staphylococcal sepsis [Recovered/Resolved]
  - Back pain [Unknown]
  - C-reactive protein increased [Unknown]
